FAERS Safety Report 16353106 (Version 1)
Quarter: 2019Q2

REPORT INFORMATION
  Report Type: Spontaneous
  Country: US (occurrence: US)
  Receive Date: 20190524
  Receipt Date: 20190524
  Transmission Date: 20190711
  Serious: No
  Sender: FDA-Public Use
  Company Number: US-PFIZER INC-2019210741

PATIENT
  Sex: Male

DRUGS (1)
  1. LYRICA [Suspect]
     Active Substance: PREGABALIN
     Indication: LUNG NEOPLASM MALIGNANT
     Dosage: UNK
     Dates: start: 2019

REACTIONS (3)
  - Off label use [Unknown]
  - Drug effective for unapproved indication [Unknown]
  - Prescription drug used without a prescription [Unknown]

NARRATIVE: CASE EVENT DATE: 2019
